FAERS Safety Report 8258067-9 (Version None)
Quarter: 2012Q2

REPORT INFORMATION
  Report Type: 
  Country: None (occurrence: None)
  Receive Date: 20120404
  Receipt Date: 20120327
  Transmission Date: 20120825
  Serious: Yes (Hospitalization)
  Sender: FDA-Public Use
  Company Number: GB-JNJFOC-20120207003

PATIENT
  Sex: Female

DRUGS (5)
  1. ABIRATERONE ACETATE [Suspect]
     Dosage: CYCLE 1, DAY 1
     Route: 048
     Dates: start: 20111130, end: 20111203
  2. RIFAMPICIN [Interacting]
     Indication: TUBERCULOSIS
     Route: 048
     Dates: start: 20120127, end: 20120129
  3. ETHAMBUTOL HYDROCHLORIDE [Interacting]
     Indication: TUBERCULOSIS
     Route: 048
     Dates: start: 20120127, end: 20120129
  4. ABIRATERONE ACETATE [Suspect]
     Indication: BREAST CANCER METASTATIC
     Route: 048
     Dates: start: 20120216
  5. RIFAMPICIN [Interacting]
     Route: 048
     Dates: start: 20120207

REACTIONS (5)
  - COORDINATION ABNORMAL [None]
  - DRUG INTERACTION [None]
  - DYSPNOEA [None]
  - CONFUSIONAL STATE [None]
  - MUSCULAR WEAKNESS [None]
